FAERS Safety Report 8036943-X (Version None)
Quarter: 2012Q1

REPORT INFORMATION
  Report Type: 
  Country: None (occurrence: None)
  Receive Date: 20120111
  Receipt Date: 20120106
  Transmission Date: 20120608
  Serious: Yes (Hospitalization)
  Sender: FDA-Public Use
  Company Number: US-ELI_LILLY_AND_COMPANY-US201108007197

PATIENT
  Sex: Male
  Weight: 61.406 kg

DRUGS (12)
  1. NORDITROPIN [Concomitant]
  2. TESTOSTERONE [Concomitant]
     Dosage: 7.5 MG, QD
  3. ATENOLOL [Concomitant]
     Dosage: 100 MG, QD
  4. POTASSIUM CHLORIDE [Concomitant]
     Dosage: 20 MEQ, TID
  5. PRILOSEC [Concomitant]
     Dosage: 40 MG, QD
  6. VITAMIN D [Concomitant]
     Dosage: 2000 IU, QD
  7. HUMATROPE [Suspect]
     Indication: ADDISON'S DISEASE
     Dosage: UNK UNK, UNKNOWN
  8. PREDNISONE TAB [Concomitant]
     Dosage: 12 MG, QOD, ALTERNATING WITH 8 MG QOD
  9. SODIUM CHLORIDE [Concomitant]
     Dosage: 1 G, TID
  10. VITAMIN B-12 [Concomitant]
     Dosage: 1000 UG, MONTHLY (1/M)
     Route: 030
  11. OXYCODONE HCL [Concomitant]
     Dosage: 30 MG, EVERY 3 HRS (8 TO 12 PER DAY)
  12. NORVASC [Concomitant]
     Dosage: 10 MG, QD

REACTIONS (7)
  - TEMPERATURE REGULATION DISORDER [None]
  - FATIGUE [None]
  - MALABSORPTION [None]
  - ATRIAL FIBRILLATION [None]
  - MEDICATION ERROR [None]
  - CHEST PAIN [None]
  - WEIGHT DECREASED [None]
